FAERS Safety Report 8848175 (Version 1)
Quarter: 2012Q4

REPORT INFORMATION
  Report Type: 
  Country: FR (occurrence: FR)
  Receive Date: 20121018
  Receipt Date: 20121018
  Transmission Date: 20130627
  Serious: Yes (Hospitalization)
  Sender: FDA-Public Use
  Company Number: FR-PFIZER INC-2012255603

PATIENT
  Age: 19 Year
  Sex: Male

DRUGS (3)
  1. EFFEXOR LP [Suspect]
     Dosage: UNK
     Route: 048
     Dates: end: 20120914
  2. DEROXAT [Suspect]
     Dosage: UNK
     Route: 048
     Dates: start: 20120907, end: 20120914
  3. LYSANXIA [Concomitant]
     Dosage: UNK

REACTIONS (2)
  - Cerebellar syndrome [Recovered/Resolved]
  - Mydriasis [Recovered/Resolved]
